FAERS Safety Report 5699290-7 (Version None)
Quarter: 2008Q2

REPORT INFORMATION
  Report Type: 
  Country: None (occurrence: None)
  Receive Date: 20080404
  Receipt Date: 20080325
  Transmission Date: 20081010
  Serious: Yes (Hospitalization)
  Sender: FDA-Public Use
  Company Number: 2008S1000057

PATIENT
  Age: 31 Year
  Sex: Female
  Weight: 54.8852 kg

DRUGS (1)
  1. INOMAX [Suspect]
     Indication: SICKLE CELL ANAEMIA WITH CRISIS
     Dosage: 80 PPM; CONT; INH
     Route: 055
     Dates: start: 20070912, end: 20070914

REACTIONS (8)
  - ANAEMIA [None]
  - HAEMOLYTIC TRANSFUSION REACTION [None]
  - JOINT EFFUSION [None]
  - PAIN [None]
  - PNEUMONIA [None]
  - PYREXIA [None]
  - SICKLE CELL ANAEMIA WITH CRISIS [None]
  - THROMBOCYTHAEMIA [None]
